FAERS Safety Report 10189974 (Version 1)
Quarter: 2014Q2

REPORT INFORMATION
  Report Type: Spontaneous
  Country: US (occurrence: None)
  Receive Date: 20140521
  Receipt Date: 20140521
  Transmission Date: 20141212
  Serious: Yes (Other)
  Sender: FDA-Public Use
  Company Number: None

PATIENT
  Age: 47 Year
  Sex: Female
  Weight: 84.82 kg

DRUGS (1)
  1. TOPIRAMATE [Suspect]
     Indication: EPILEPSY
     Dosage: QAM
     Route: 048
     Dates: start: 20140211, end: 20140513

REACTIONS (2)
  - Rash erythematous [None]
  - Eczema [None]
